FAERS Safety Report 21291265 (Version 1)
Quarter: 2022Q3

REPORT INFORMATION
  Report Type: Spontaneous
  Country: US (occurrence: US)
  Receive Date: 20220903
  Receipt Date: 20220903
  Transmission Date: 20221027
  Serious: No
  Sender: FDA-Public Use
  Company Number: US-TEVA-2022-US-2067089

PATIENT
  Age: 76 Year
  Sex: Male
  Weight: 103.87 kg

DRUGS (1)
  1. ALBUTEROL SULFATE [Suspect]
     Active Substance: ALBUTEROL SULFATE
     Indication: Hypersensitivity
     Route: 055
     Dates: start: 20220818

REACTIONS (6)
  - Hyperhidrosis [Recovering/Resolving]
  - Muscular weakness [Recovering/Resolving]
  - Oxygen saturation decreased [Recovering/Resolving]
  - Hypertension [Recovering/Resolving]
  - Nervousness [Recovering/Resolving]
  - Product use in unapproved indication [Unknown]

NARRATIVE: CASE EVENT DATE: 20220818
